FAERS Safety Report 10602128 (Version 1)
Quarter: 2014Q4

REPORT INFORMATION
  Report Type: Spontaneous
  Country: FR (occurrence: FR)
  Receive Date: 20141124
  Receipt Date: 20141124
  Transmission Date: 20150529
  Serious: Yes (Hospitalization, Other)
  Sender: FDA-Public Use
  Company Number: FR-BRISTOL-MYERS SQUIBB COMPANY-21614615

PATIENT
  Age: 89 Year
  Sex: Female
  Weight: 93 kg

DRUGS (14)
  1. DOLIPRANE [Concomitant]
     Active Substance: ACETAMINOPHEN
  2. VITAMIN C [Concomitant]
     Active Substance: ASCORBIC ACID
  3. BROMAZEPAM [Concomitant]
     Active Substance: BROMAZEPAM
  4. EUPRESSYL [Concomitant]
     Active Substance: URAPIDIL
  5. LERCAN [Concomitant]
     Active Substance: LERCANIDIPINE
  6. TRIATEC [Concomitant]
     Active Substance: RAMIPRIL
  7. COUMADINE [Suspect]
     Active Substance: WARFARIN SODIUM
     Dates: end: 20140824
  8. TARDYFERON [Concomitant]
     Active Substance: FERROUS SULFATE\FOLIC ACID
  9. AMIODARONE [Concomitant]
     Active Substance: AMIODARONE
  10. MOVICOL [Concomitant]
     Active Substance: POLYETHYLENE GLYCOL 3350\POTASSIUM CHLORIDE\SODIUM BICARBONATE\SODIUM CHLORIDE
  11. FUROSEMIDE. [Concomitant]
     Active Substance: FUROSEMIDE
  12. ALPRAZOLAM. [Concomitant]
     Active Substance: ALPRAZOLAM
  13. INEXIUM [Concomitant]
     Active Substance: ESOMEPRAZOLE
  14. SPECIAFOLDINE [Concomitant]
     Active Substance: FOLIC ACID

REACTIONS (5)
  - International normalised ratio increased [Recovered/Resolved]
  - Overdose [Unknown]
  - Anaemia [Recovered/Resolved]
  - Gastric polyps [Unknown]
  - Dizziness [Recovered/Resolved]

NARRATIVE: CASE EVENT DATE: 2014
